FAERS Safety Report 21914498 (Version 14)
Quarter: 2024Q1

REPORT INFORMATION
  Report Type: Spontaneous
  Country: JP (occurrence: JP)
  Receive Date: 20230126
  Receipt Date: 20240229
  Transmission Date: 20240409
  Serious: Yes (Hospitalization, Other)
  Sender: FDA-Public Use
  Company Number: JP-ASTELLAS-2023JP000762

PATIENT
  Age: 62 Year
  Sex: Female

DRUGS (5)
  1. XOSPATA [Interacting]
     Active Substance: GILTERITINIB
     Indication: Acute myeloid leukaemia recurrent
     Route: 048
     Dates: start: 20221202, end: 20221207
  2. XOSPATA [Interacting]
     Active Substance: GILTERITINIB
     Indication: Acute myeloid leukaemia refractory
     Route: 048
     Dates: start: 20221208, end: 20230119
  3. XOSPATA [Interacting]
     Active Substance: GILTERITINIB
     Route: 048
     Dates: start: 20230120, end: 20230224
  4. RIFABUTIN [Interacting]
     Active Substance: RIFABUTIN
     Indication: Lymph node tuberculosis
     Dosage: UNK UNK, UNKNOWN FREQ.
     Route: 065
  5. ITRACONAZOLE [Interacting]
     Active Substance: ITRACONAZOLE
     Indication: Infection prophylaxis
     Dosage: UNK UNK, UNKNOWN FREQ.
     Route: 065

REACTIONS (4)
  - Bone marrow failure [Not Recovered/Not Resolved]
  - Pyrexia [Recovering/Resolving]
  - Labelled drug-drug interaction issue [Unknown]
  - Labelled drug-drug interaction issue [Unknown]

NARRATIVE: CASE EVENT DATE: 20221201
